FAERS Safety Report 6474044-2 (Version None)
Quarter: 2009Q4

REPORT INFORMATION
  Report Type: 
  Country: None (occurrence: None)
  Receive Date: 20091204
  Receipt Date: 20081224
  Transmission Date: 20100525
  Serious: No
  Sender: FDA-Public Use
  Company Number: US-AMGEN-KDL325671

PATIENT
  Sex: Male

DRUGS (3)
  1. ENBREL [Suspect]
     Indication: RHEUMATOID ARTHRITIS
     Route: 058
     Dates: start: 20081120
  2. LEFLUNOMIDE [Concomitant]
     Route: 048
  3. PREDNISONE [Concomitant]

REACTIONS (1)
  - DRUG EFFECT DECREASED [None]
